FAERS Safety Report 22302375 (Version 2)
Quarter: 2023Q2

REPORT INFORMATION
  Report Type: Spontaneous
  Country: US (occurrence: US)
  Receive Date: 20230510
  Receipt Date: 20230515
  Transmission Date: 20230722
  Serious: No
  Sender: FDA-Public Use
  Company Number: US-AMGEN-USASP2023080240

PATIENT
  Age: 71 Year
  Sex: Male

DRUGS (2)
  1. RIABNI [Suspect]
     Active Substance: RITUXIMAB-ARRX
     Indication: Marginal zone lymphoma
     Dosage: 0.87 MILLIGRAM/1 ML/DOSE: 500 MG/50 ML (10MG/ML) USED 1.5 VIALS =70 ML
     Route: 042
  2. RIABNI [Suspect]
     Active Substance: RITUXIMAB-ARRX
     Dosage: 500 MILLIGRAM
     Route: 042

REACTIONS (1)
  - Intercepted product preparation error [Unknown]

NARRATIVE: CASE EVENT DATE: 20230509
